FAERS Safety Report 8779646 (Version 3)
Quarter: 2013Q4

REPORT INFORMATION
  Report Type: Spontaneous
  Country: US (occurrence: US)
  Receive Date: 20120912
  Receipt Date: 20131213
  Transmission Date: 20140711
  Serious: Yes (Hospitalization, Other)
  Sender: FDA-Public Use
  Company Number: US-BAYER-2012-094541

PATIENT
  Age: 42 Year
  Sex: Female
  Weight: 61.22 kg

DRUGS (3)
  1. YASMIN [Suspect]
     Indication: CONTRACEPTION
     Dosage: UNK
     Dates: start: 2003, end: 2006
  2. POTASSIUM [POTASSIUM] [Concomitant]
  3. ASCORBIC ACID [Concomitant]

REACTIONS (9)
  - Gallbladder non-functioning [None]
  - Cholecystitis chronic [None]
  - Injury [None]
  - Pain [None]
  - Emotional distress [None]
  - Anxiety [None]
  - Psychological trauma [None]
  - Scar [None]
  - Jaundice [None]
